APPROVED DRUG PRODUCT: TRIMETHOBENZAMIDE HYDROCHLORIDE PRESERVATIVE FREE
Active Ingredient: TRIMETHOBENZAMIDE HYDROCHLORIDE
Strength: 100MG/ML
Dosage Form/Route: INJECTABLE;INJECTION
Application: A091329 | Product #001
Applicant: AMERICAN REGENT INC
Approved: Mar 8, 2011 | RLD: No | RS: No | Type: DISCN